FAERS Safety Report 4359957-X (Version None)
Quarter: 2004Q2

REPORT INFORMATION
  Report Type: 
  Country: None (occurrence: None)
  Receive Date: 20040512
  Receipt Date: 20040429
  Transmission Date: 20050107
  Serious: Yes (Hospitalization)
  Sender: FDA-Public Use
  Company Number: 2004UW08787

PATIENT
  Age: 60 Year
  Sex: Male

DRUGS (8)
  1. CRESTOR [Suspect]
     Dosage: 10 MG PO
     Route: 048
  2. COUMADIN [Suspect]
     Dosage: 5 MG QD PO
     Route: 048
  3. COUMADIN [Suspect]
  4. ULTRAM [Concomitant]
  5. ACE INHIBITOR [Concomitant]
  6. BETA BLOCKER [Concomitant]
  7. DIURETIC [Concomitant]
  8. PROTON PUMP INHIBITOR [Concomitant]

REACTIONS (3)
  - DRUG INTERACTION [None]
  - GASTROINTESTINAL HAEMORRHAGE [None]
  - INTERNATIONAL NORMALISED RATIO INCREASED [None]
